FAERS Safety Report 25024380 (Version 1)
Quarter: 2025Q1

REPORT INFORMATION
  Report Type: Spontaneous
  Country: ES (occurrence: ES)
  Receive Date: 20250228
  Receipt Date: 20250228
  Transmission Date: 20250408
  Serious: Yes (Other)
  Sender: Kenvue
  Company Number: ES-AMAROX PHARMA-AMR2025ES00617

PATIENT

DRUGS (1)
  1. IBUPROFEN [Suspect]
     Active Substance: IBUPROFEN
     Indication: Respiratory tract infection
     Route: 065

REACTIONS (1)
  - Tubulointerstitial nephritis [Unknown]
